FAERS Safety Report 11360677 (Version 1)
Quarter: 2015Q3

REPORT INFORMATION
  Report Type: Spontaneous
  Country: US (occurrence: US)
  Receive Date: 20150810
  Receipt Date: 20150810
  Transmission Date: 20151125
  Serious: Yes (Other)
  Sender: FDA-Public Use
  Company Number: US-SUN PHARMACEUTICAL INDUSTRIES LTD-2014SUN01753

PATIENT

DRUGS (2)
  1. SUMATRIPTAN SUCCINATE INJECTION 6 MG/0.5 ML [Suspect]
     Active Substance: SUMATRIPTAN SUCCINATE
     Indication: MIGRAINE
     Dosage: AS NEEDED
     Route: 058
     Dates: start: 201307
  2. SUMATRIPTAN SUCCINATE INJECTION 6 MG/0.5 ML [Suspect]
     Active Substance: SUMATRIPTAN SUCCINATE
     Dosage: AS NEEDED
     Route: 058
     Dates: start: 201307

REACTIONS (2)
  - Seizure [Unknown]
  - Device malfunction [Recovered/Resolved]

NARRATIVE: CASE EVENT DATE: 20140707
